FAERS Safety Report 15144976 (Version 1)
Quarter: 2018Q3

REPORT INFORMATION
  Report Type: Spontaneous
  Country: FR (occurrence: FR)
  Receive Date: 20180713
  Receipt Date: 20180713
  Transmission Date: 20181010
  Serious: Yes (Other)
  Sender: FDA-Public Use
  Company Number: FR-SA-2018SA178905

PATIENT
  Age: 60 Year
  Sex: Male
  Weight: 81 kg

DRUGS (12)
  1. IRINOTECAN [Suspect]
     Active Substance: IRINOTECAN
     Indication: ADENOCARCINOMA OF COLON
     Dosage: 354.6 MG, QCY
     Route: 041
     Dates: start: 20180214
  2. DOXYLIS [Concomitant]
  3. PRIMPERAN [Concomitant]
     Active Substance: METOCLOPRAMIDE HYDROCHLORIDE
  4. UVEDOSE [Concomitant]
     Active Substance: CHOLECALCIFEROL
  5. AMLOR [Concomitant]
     Active Substance: AMLODIPINE BESYLATE
  6. ZYLORIC [Concomitant]
     Active Substance: ALLOPURINOL
  7. INEXIUM [Concomitant]
     Active Substance: ESOMEPRAZOLE
     Indication: GASTROOESOPHAGEAL REFLUX DISEASE
     Dosage: 20 MG, QD
     Route: 048
  8. ZALTRAP [Suspect]
     Active Substance: ZIV-AFLIBERCEPT
     Indication: ADENOCARCINOMA OF COLON
     Dosage: 324 MG, QCY
     Route: 041
     Dates: start: 20180214, end: 20180411
  9. FLUOROURACILE [Suspect]
     Active Substance: FLUOROURACIL
     Indication: ADENOCARCINOMA OF COLON
     Dosage: 3940 MG, QCY
     Route: 041
     Dates: start: 20180214
  10. CAPTEA [Concomitant]
     Active Substance: CAPTOPRIL\HYDROCHLOROTHIAZIDE
  11. TIORFAN [Concomitant]
     Active Substance: RACECADOTRIL
  12. XANAX [Concomitant]
     Active Substance: ALPRAZOLAM

REACTIONS (1)
  - Colitis microscopic [Not Recovered/Not Resolved]

NARRATIVE: CASE EVENT DATE: 201802
